FAERS Safety Report 17983614 (Version 1)
Quarter: 2020Q3

REPORT INFORMATION
  Report Type: Report from Study
  Country: IT (occurrence: IT)
  Receive Date: 20200706
  Receipt Date: 20200706
  Transmission Date: 20201103
  Serious: Yes (Hospitalization)
  Sender: FDA-Public Use
  Company Number: IT-TEVA-2020-IT-1795501

PATIENT
  Age: 85 Year
  Sex: Female

DRUGS (8)
  1. SIVASTIN [Concomitant]
     Active Substance: SIMVASTATIN
  2. LANSOPRAZOLE. [Concomitant]
     Active Substance: LANSOPRAZOLE
  3. ZYLORIC 300 MG COMPRESSE [Concomitant]
     Active Substance: ALLOPURINOL
  4. BISOPROLOL FUMARATE. [Suspect]
     Active Substance: BISOPROLOL FUMARATE
     Indication: CARDIAC FAILURE
     Dosage: 2.5 MG
     Route: 065
     Dates: start: 20200101, end: 20200415
  5. TEGRETOL [Suspect]
     Active Substance: CARBAMAZEPINE
     Indication: EPILEPSY
     Dosage: 300 MG
     Dates: start: 20200101, end: 20200415
  6. RAMIPRIL/IDROCLOROTIAZIDE [Concomitant]
     Active Substance: HYDROCHLOROTHIAZIDE\RAMIPRIL
  7. TRIAPIN 5 MG/5 MG COMPRESSE A RILASCIO PROLUNGATO [Concomitant]
     Active Substance: FELODIPINE\RAMIPRIL
  8. ACETYLSALICYLIC ACID [Concomitant]
     Active Substance: ASPIRIN

REACTIONS (3)
  - Bradycardia [Unknown]
  - Bundle branch block right [Unknown]
  - Atrioventricular block [Unknown]

NARRATIVE: CASE EVENT DATE: 20200415
